FAERS Safety Report 25177354 (Version 2)
Quarter: 2025Q2

REPORT INFORMATION
  Report Type: Spontaneous
  Country: SA (occurrence: SA)
  Receive Date: 20250409
  Receipt Date: 20250415
  Transmission Date: 20250716
  Serious: Yes (Death, Hospitalization)
  Sender: CHIESI
  Company Number: SA-CHIESI-2025CHF02384

PATIENT
  Sex: Female

DRUGS (1)
  1. METRELEPTIN [Suspect]
     Active Substance: METRELEPTIN
     Indication: Congenital generalised lipodystrophy

REACTIONS (3)
  - Cardiac arrest [Fatal]
  - Viral infection [Fatal]
  - Respiratory failure [Fatal]
